FAERS Safety Report 5547453-3 (Version None)
Quarter: 2007Q4

REPORT INFORMATION
  Report Type: 
  Country: None (occurrence: None)
  Receive Date: 20071126
  Receipt Date: 20070419
  Transmission Date: 20080405
  Serious: Yes (Other)
  Sender: FDA-Public Use
  Company Number: 2007BH003138

PATIENT
  Sex: Male

DRUGS (2)
  1. DIANEAL [Suspect]
     Indication: RENAL FAILURE CHRONIC
     Dosage: 5 L; IP
     Route: 033
     Dates: end: 20070301
  2. DIANEAL [Suspect]
     Indication: RENAL FAILURE CHRONIC
     Dosage: 2 L; IP
     Route: 033
     Dates: end: 20070301

REACTIONS (1)
  - PERITONITIS BACTERIAL [None]
